FAERS Safety Report 21573554 (Version 3)
Quarter: 2023Q1

REPORT INFORMATION
  Report Type: Report from Study
  Country: TW (occurrence: TW)
  Receive Date: 20221109
  Receipt Date: 20230124
  Transmission Date: 20230417
  Serious: Yes (Hospitalization)
  Sender: FDA-Public Use
  Company Number: TW-GILEAD-2022-0604248

PATIENT
  Sex: Male

DRUGS (17)
  1. SACITUZUMAB GOVITECAN [Suspect]
     Active Substance: SACITUZUMAB GOVITECAN
     Indication: Non-small cell lung cancer
     Dosage: 580 MG (7MG/KG)
     Route: 042
     Dates: start: 20221019, end: 20221019
  2. SACITUZUMAB GOVITECAN [Suspect]
     Active Substance: SACITUZUMAB GOVITECAN
     Dosage: 580 MG (7MG/KG)
     Route: 042
     Dates: start: 20221102, end: 20221102
  3. SACITUZUMAB GOVITECAN [Suspect]
     Active Substance: SACITUZUMAB GOVITECAN
     Dosage: 580 MG (7MG/KG)
     Route: 042
     Dates: start: 20221116, end: 20221116
  4. SACITUZUMAB GOVITECAN [Suspect]
     Active Substance: SACITUZUMAB GOVITECAN
     Dosage: 580 MG (7MG/KG)
     Route: 042
     Dates: start: 20221130, end: 20221130
  5. SACITUZUMAB GOVITECAN [Suspect]
     Active Substance: SACITUZUMAB GOVITECAN
     Dosage: 580 MG (7MG/KG)
     Route: 042
     Dates: start: 20221214, end: 20221214
  6. SACITUZUMAB GOVITECAN [Suspect]
     Active Substance: SACITUZUMAB GOVITECAN
     Dosage: 580 MG (7MG/KG)
     Route: 042
     Dates: start: 20221221, end: 20221221
  7. SACITUZUMAB GOVITECAN [Suspect]
     Active Substance: SACITUZUMAB GOVITECAN
     Dosage: 580 MG (7MG/KG)
     Route: 042
     Dates: start: 20230104, end: 20230104
  8. PEMBROLIZUMAB [Suspect]
     Active Substance: PEMBROLIZUMAB
     Indication: Non-small cell lung cancer
     Dosage: 200 MG
     Route: 042
     Dates: start: 20221019, end: 20221019
  9. PEMBROLIZUMAB [Suspect]
     Active Substance: PEMBROLIZUMAB
     Dosage: 200 MG
     Route: 042
     Dates: start: 20221116, end: 20221116
  10. PEMBROLIZUMAB [Suspect]
     Active Substance: PEMBROLIZUMAB
     Dosage: 200 MG
     Route: 042
     Dates: start: 20221214, end: 20221214
  11. PEMBROLIZUMAB [Suspect]
     Active Substance: PEMBROLIZUMAB
     Dosage: 200 MG
     Route: 042
     Dates: start: 20230104, end: 20230104
  12. DIPHENHYDRAMINE [Concomitant]
     Active Substance: DIPHENHYDRAMINE
     Indication: Prophylaxis
     Dosage: UNK
     Route: 040
     Dates: start: 20221019, end: 20221019
  13. DIPHENHYDRAMINE [Concomitant]
     Active Substance: DIPHENHYDRAMINE
     Indication: Rash
     Dosage: UNK
     Route: 048
     Dates: start: 20221026
  14. CROTAMITON H [Concomitant]
     Indication: Rash
     Dosage: UNK
     Route: 061
     Dates: start: 20221026, end: 20221109
  15. LEVOCETIRIZINE [Concomitant]
     Active Substance: LEVOCETIRIZINE
     Indication: Rash
     Dosage: UNK
     Route: 048
     Dates: start: 20221026, end: 20221109
  16. PREDNISOLONE [Concomitant]
     Active Substance: PREDNISOLONE
     Indication: Rash
     Route: 048
     Dates: start: 20221026
  17. BACLOFEN [Concomitant]
     Active Substance: BACLOFEN
     Indication: Prophylaxis
     Route: 048
     Dates: start: 20221102

REACTIONS (1)
  - Dysphagia [Recovered/Resolved]

NARRATIVE: CASE EVENT DATE: 20221107
